FAERS Safety Report 7509387-4 (Version None)
Quarter: 2011Q2

REPORT INFORMATION
  Report Type: 
  Country: None (occurrence: None)
  Receive Date: 20110519
  Receipt Date: 20110513
  Transmission Date: 20111010
  Serious: Yes (Hospitalization)
  Sender: FDA-Public Use
  Company Number: ACY-11-07

PATIENT
  Age: 43 Year
  Sex: Female

DRUGS (1)
  1. ACYCLOVIR [Suspect]
     Indication: HERPES ZOSTER
     Dosage: IV INFUSION 2.5G
     Route: 042

REACTIONS (7)
  - OLIGURIA [None]
  - NAUSEA [None]
  - VOMITING [None]
  - ASTHENIA [None]
  - FLANK PAIN [None]
  - PYREXIA [None]
  - RENAL IMPAIRMENT [None]
